FAERS Safety Report 8180880-7 (Version None)
Quarter: 2012Q1

REPORT INFORMATION
  Report Type: 
  Country: None (occurrence: None)
  Receive Date: 20120229
  Receipt Date: 20120216
  Transmission Date: 20120608
  Serious: Yes (Other)
  Sender: FDA-Public Use
  Company Number: AU-1190641

PATIENT
  Sex: Female

DRUGS (2)
  1. SYSTANE EYE DROPS (SYSTANE ULTRA) [Suspect]
     Indication: DRY EYE
     Dosage: (OPHTHALMIC)
     Route: 047
     Dates: start: 20120101
  2. FLUOROMETHOLONE [Concomitant]

REACTIONS (8)
  - LACRIMATION INCREASED [None]
  - EYE IRRITATION [None]
  - FOREIGN BODY SENSATION IN EYES [None]
  - EYE PAIN [None]
  - NAUSEA [None]
  - CORNEAL PERFORATION [None]
  - EYE INJURY [None]
  - EYE MOVEMENT DISORDER [None]
